FAERS Safety Report 25128368 (Version 1)
Quarter: 2025Q1

REPORT INFORMATION
  Report Type: Spontaneous
  Country: US (occurrence: US)
  Receive Date: 20250327
  Receipt Date: 20250327
  Transmission Date: 20250408
  Serious: Yes (Other)
  Sender: TEVA
  Company Number: US-TEVA-VS-3311751

PATIENT
  Sex: Male

DRUGS (2)
  1. MATZIM LA [Suspect]
     Active Substance: DILTIAZEM HYDROCHLORIDE
     Indication: Product used for unknown indication
     Route: 065
  2. DILTIAZEM [Concomitant]
     Active Substance: DILTIAZEM
     Indication: Product used for unknown indication
     Route: 065

REACTIONS (5)
  - Blood pressure increased [Unknown]
  - Headache [Unknown]
  - Chest pain [Unknown]
  - Night sweats [Unknown]
  - Malaise [Unknown]
